FAERS Safety Report 24141494 (Version 2)
Quarter: 2025Q3

REPORT INFORMATION
  Report Type: Spontaneous
  Country: GB (occurrence: GB)
  Receive Date: 20240726
  Receipt Date: 20250917
  Transmission Date: 20251021
  Serious: Yes (Life-Threatening, Other)
  Sender: RANBAXY
  Company Number: GB-SUN PHARMACEUTICAL INDUSTRIES LTD-2024RR-458894

PATIENT
  Age: 73 Year
  Sex: Female

DRUGS (2)
  1. VENLAFAXINE [Interacting]
     Active Substance: VENLAFAXINE HYDROCHLORIDE
     Indication: Depression
     Route: 065
     Dates: start: 201907
  2. DATSCAN [Interacting]
     Active Substance: IODINE\IOFLUPANE I-123
     Indication: Parkinsonism
     Route: 065
     Dates: start: 202109, end: 202109

REACTIONS (3)
  - Drug interaction [Not Recovered/Not Resolved]
  - Parkinsonism [Unknown]
  - Malaise [Unknown]

NARRATIVE: CASE EVENT DATE: 20210901
